FAERS Safety Report 13437893 (Version 1)
Quarter: 2017Q2

REPORT INFORMATION
  Report Type: Spontaneous
  Country: US (occurrence: US)
  Receive Date: 20170413
  Receipt Date: 20170413
  Transmission Date: 20170830
  Serious: No
  Sender: FDA-Public Use
  Company Number: US-SA-2016SA185504

PATIENT
  Sex: Male

DRUGS (1)
  1. ALLEGRA-D 24 HOUR [Suspect]
     Active Substance: FEXOFENADINE HYDROCHLORIDE\PSEUDOEPHEDRINE HYDROCHLORIDE
     Indication: HYPERSENSITIVITY
     Route: 048

REACTIONS (8)
  - Nausea [Unknown]
  - Fatigue [Unknown]
  - Headache [Unknown]
  - Feeling jittery [Unknown]
  - Insomnia [Unknown]
  - Prostatic specific antigen increased [Unknown]
  - Feeding disorder [Unknown]
  - Dry mouth [Unknown]
